FAERS Safety Report 7454768-0 (Version None)
Quarter: 2011Q2

REPORT INFORMATION
  Report Type: 
  Country: None (occurrence: None)
  Receive Date: 20110503
  Receipt Date: 20110310
  Transmission Date: 20111010
  Serious: No
  Sender: FDA-Public Use
  Company Number: US-PFIZER INC-2011053420

PATIENT
  Sex: Female

DRUGS (1)
  1. CORTEF [Suspect]

REACTIONS (3)
  - BLOOD PRESSURE ABNORMAL [None]
  - NAUSEA [None]
  - ADVERSE EVENT [None]
